FAERS Safety Report 16643970 (Version 3)
Quarter: 2019Q3

REPORT INFORMATION
  Report Type: Spontaneous
  Country: DE (occurrence: DE)
  Receive Date: 20190729
  Receipt Date: 20190807
  Transmission Date: 20191004
  Serious: Yes (Life-Threatening, Other)
  Sender: FDA-Public Use
  Company Number: DE-ASTRAZENECA-2019SF06876

PATIENT
  Age: 951 Month
  Sex: Female
  Weight: 48 kg

DRUGS (7)
  1. BRILIQUE [Suspect]
     Active Substance: TICAGRELOR
     Route: 048
     Dates: start: 20180502
  2. NEBILET [Concomitant]
     Active Substance: NEBIVOLOL
     Indication: CORONARY ARTERY DISEASE
     Dosage: 1/4 (1-0-1)
  3. BRILIQUE [Suspect]
     Active Substance: TICAGRELOR
     Route: 048
     Dates: start: 201904
  4. BRILIQUE [Suspect]
     Active Substance: TICAGRELOR
     Route: 048
     Dates: start: 201804
  5. BRILIQUE [Suspect]
     Active Substance: TICAGRELOR
     Route: 048
     Dates: start: 201906
  6. ACETYLSALICYLIC ACID [Concomitant]
     Active Substance: ASPIRIN
     Indication: CORONARY ARTERY DISEASE
     Dosage: 100 FOR THE DURATION OF A WHOLE YEAR
  7. PREDNISOLON [Concomitant]
     Active Substance: PREDNISOLONE
     Indication: INTERSTITIAL LUNG DISEASE
     Dosage: 100 (0-1-0),
     Dates: start: 201808, end: 201901

REACTIONS (8)
  - Asthenia [Not Recovered/Not Resolved]
  - Weight decreased [Not Recovered/Not Resolved]
  - Cough [Not Recovered/Not Resolved]
  - Dyspnoea [Not Recovered/Not Resolved]
  - Haemorrhage subcutaneous [Not Recovered/Not Resolved]
  - Interstitial lung disease [Unknown]
  - Myocardial infarction [Unknown]
  - Back pain [Unknown]

NARRATIVE: CASE EVENT DATE: 201804
